FAERS Safety Report 6012038-1 (Version None)
Quarter: 2008Q4

REPORT INFORMATION
  Report Type: 
  Country: None (occurrence: None)
  Receive Date: 20081218
  Receipt Date: 20081103
  Transmission Date: 20090506
  Serious: No
  Sender: FDA-Public Use
  Company Number: US-ASTRAZENECA-2008UW24502

PATIENT
  Age: 81 Year
  Sex: Female
  Weight: 61.2 kg

DRUGS (6)
  1. CRESTOR [Suspect]
     Indication: BLOOD CHOLESTEROL INCREASED
     Route: 048
     Dates: start: 20081031, end: 20081031
  2. MICRONASE [Concomitant]
  3. METFORMIN HCL [Concomitant]
  4. EFFEXOR [Concomitant]
  5. CARTIA XT [Concomitant]
  6. COUMADIN [Concomitant]

REACTIONS (4)
  - APHONIA [None]
  - HYPERHIDROSIS [None]
  - PALLOR [None]
  - THIRST [None]
